FAERS Safety Report 6094033-X (Version None)
Quarter: 2009Q1

REPORT INFORMATION
  Report Type: 
  Country: None (occurrence: None)
  Receive Date: 20090224
  Receipt Date: 20090224
  Transmission Date: 20090719
  Serious: Yes (Hospitalization)
  Sender: FDA-Public Use
  Company Number: None

PATIENT
  Sex: Female
  Weight: 76.6579 kg

DRUGS (1)
  1. DOXIL [Suspect]
     Indication: INVESTIGATION
     Dosage: 10MG, ONCE, INTRADUCTALLY
     Route: 050

REACTIONS (7)
  - BREAST INFECTION [None]
  - BREAST NECROSIS [None]
  - CULTURE POSITIVE [None]
  - ESCHAR [None]
  - PSEUDOMONAS INFECTION [None]
  - PYREXIA [None]
  - SEROMA [None]
